FAERS Safety Report 18652539 (Version 3)
Quarter: 2022Q2

REPORT INFORMATION
  Report Type: Other
  Country: IT (occurrence: None)
  Receive Date: 20201223
  Receipt Date: 20220629
  Transmission Date: 20220721
  Serious: No
  Sender: FDA-Public Use
  Company Number: IT-ROCHE-2738504

PATIENT
  Age: 36 Year
  Sex: Female

DRUGS (25)
  1. OCRELIZUMAB [Suspect]
     Active Substance: OCRELIZUMAB
     Indication: Primary progressive multiple sclerosis
     Dosage: 300 MG/250 ML
     Route: 042
     Dates: start: 20190905, end: 20190905
  2. OCRELIZUMAB [Suspect]
     Active Substance: OCRELIZUMAB
     Dosage: 300 MG/250 ML
     Route: 042
     Dates: start: 20190923, end: 20190923
  3. OCRELIZUMAB [Suspect]
     Active Substance: OCRELIZUMAB
     Dosage: 600 MG/500 ML
     Route: 042
     Dates: start: 20200708, end: 20200708
  4. OCRELIZUMAB [Suspect]
     Active Substance: OCRELIZUMAB
     Dosage: 600 MG/500 ML
     Route: 042
     Dates: start: 20210119, end: 20210119
  5. PREGABALIN [Concomitant]
     Active Substance: PREGABALIN
     Route: 048
     Dates: start: 20181208, end: 20211013
  6. VENLAFAXINE [Concomitant]
     Active Substance: VENLAFAXINE HYDROCHLORIDE
     Route: 048
     Dates: start: 20191216, end: 20211013
  7. AMITRIPTYLINE HYDROCHLORIDE\CHLORDIAZEPOXIDE HYDROCHLORIDE [Concomitant]
     Active Substance: AMITRIPTYLINE HYDROCHLORIDE\CHLORDIAZEPOXIDE HYDROCHLORIDE
     Dosage: 1 TABLET
     Route: 048
     Dates: start: 20201012
  8. INDOMETHACIN [Concomitant]
     Active Substance: INDOMETHACIN
     Dosage: 1 CAPSULE PRN (AS NEEDED)
     Route: 048
     Dates: start: 20201012, end: 20211013
  9. CITIRIZINE [Concomitant]
     Route: 048
     Dates: start: 20190904, end: 20190904
  10. CITIRIZINE [Concomitant]
     Route: 048
     Dates: start: 20190905, end: 20190905
  11. CITIRIZINE [Concomitant]
     Route: 048
     Dates: start: 20190922, end: 20190922
  12. CITIRIZINE [Concomitant]
     Route: 048
     Dates: start: 20190923, end: 20190923
  13. SOLU-MEDROL [Concomitant]
     Active Substance: METHYLPREDNISOLONE SODIUM SUCCINATE
     Route: 042
     Dates: start: 20190905, end: 20190905
  14. SOLU-MEDROL [Concomitant]
     Active Substance: METHYLPREDNISOLONE SODIUM SUCCINATE
     Route: 042
     Dates: start: 20190923, end: 20190923
  15. SOLU-MEDROL [Concomitant]
     Active Substance: METHYLPREDNISOLONE SODIUM SUCCINATE
     Route: 042
     Dates: start: 20200708, end: 20200708
  16. SOLU-MEDROL [Concomitant]
     Active Substance: METHYLPREDNISOLONE SODIUM SUCCINATE
     Route: 042
     Dates: start: 20210119, end: 20210119
  17. ZANTAC [Concomitant]
     Active Substance: RANITIDINE HYDROCHLORIDE
     Route: 042
     Dates: start: 20190905, end: 20190905
  18. ZANTAC [Concomitant]
     Active Substance: RANITIDINE HYDROCHLORIDE
     Route: 042
     Dates: start: 20190923, end: 20190923
  19. ACETAMINOPHEN [Concomitant]
     Active Substance: ACETAMINOPHEN
     Route: 042
     Dates: start: 20190905, end: 20190905
  20. ACETAMINOPHEN [Concomitant]
     Active Substance: ACETAMINOPHEN
     Route: 042
     Dates: start: 20190923, end: 20190923
  21. ACETAMINOPHEN [Concomitant]
     Active Substance: ACETAMINOPHEN
     Route: 042
     Dates: start: 20200708, end: 20200708
  22. ACETAMINOPHEN [Concomitant]
     Active Substance: ACETAMINOPHEN
     Route: 042
     Dates: start: 20210119, end: 20210119
  23. TRIMETON [Concomitant]
     Active Substance: CHLORPHENIRAMINE MALEATE
     Route: 042
     Dates: start: 20200708, end: 20200708
  24. TRIMETON [Concomitant]
     Active Substance: CHLORPHENIRAMINE MALEATE
     Route: 042
     Dates: start: 20210119, end: 20210119
  25. PANTOPRAZOLE [Concomitant]
     Active Substance: PANTOPRAZOLE
     Route: 042
     Dates: start: 20200708, end: 20200708

REACTIONS (1)
  - COVID-19 [Recovered/Resolved]

NARRATIVE: CASE EVENT DATE: 20201105
